FAERS Safety Report 15287980 (Version 3)
Quarter: 2018Q4

REPORT INFORMATION
  Report Type: Spontaneous
  Country: US (occurrence: US)
  Receive Date: 20180817
  Receipt Date: 20181203
  Transmission Date: 20190204
  Serious: No
  Sender: FDA-Public Use
  Company Number: US-PFIZER INC-2018330065

PATIENT
  Age: 68 Year
  Sex: Male

DRUGS (4)
  1. INLYTA [Suspect]
     Active Substance: AXITINIB
     Dosage: 5 MG, 2X/DAY
     Route: 048
     Dates: start: 20180804
  2. INLYTA [Suspect]
     Active Substance: AXITINIB
     Dosage: 5 MG, 2X/DAY
     Route: 048
     Dates: start: 20180803
  3. INLYTA [Suspect]
     Active Substance: AXITINIB
     Indication: RENAL CANCER
     Dosage: 5 MG, 2X/DAY
     Route: 048
     Dates: start: 201807
  4. CELLCEPT [Concomitant]
     Active Substance: MYCOPHENOLATE MOFETIL\MYCOPHENOLATE MOFETIL HYDROCHLORIDE
     Indication: RENAL CANCER
     Dosage: 100 MG, 2X/DAY
     Dates: start: 20090418

REACTIONS (2)
  - Diarrhoea [Unknown]
  - Palmar-plantar erythrodysaesthesia syndrome [Not Recovered/Not Resolved]

NARRATIVE: CASE EVENT DATE: 201807
